FAERS Safety Report 24171481 (Version 2)
Quarter: 2025Q1

REPORT INFORMATION
  Report Type: Spontaneous
  Country: FR (occurrence: FR)
  Receive Date: 20240805
  Receipt Date: 20250115
  Transmission Date: 20250409
  Serious: Yes (Hospitalization, Other)
  Sender: SANOFI AVENTIS
  Company Number: None

PATIENT
  Age: 69 Year
  Sex: Male

DRUGS (3)
  1. DIGOXIN [Suspect]
     Active Substance: DIGOXIN
     Indication: Atrial fibrillation
     Dosage: 1 DF, QD (LC)
     Route: 048
     Dates: end: 20240615
  2. PLAVIX [Suspect]
     Active Substance: CLOPIDOGREL BISULFATE
     Indication: Product used for unknown indication
     Dosage: 1 DF, QD (LC)
     Route: 048
     Dates: end: 20240613
  3. FLUINDIONE [Suspect]
     Active Substance: FLUINDIONE
     Indication: Thrombosis prophylaxis
     Dosage: 1 DF, QD (LC)
     Route: 048
     Dates: end: 20240613

REACTIONS (5)
  - Anticoagulation drug level above therapeutic [Recovered/Resolved]
  - Haematemesis [Recovered/Resolved]
  - Bradycardia [Recovered/Resolved]
  - Toxicity to various agents [Recovered/Resolved]
  - Anaemia [Not Recovered/Not Resolved]

NARRATIVE: CASE EVENT DATE: 20240613
